FAERS Safety Report 23231814 (Version 1)
Quarter: 2023Q4

REPORT INFORMATION
  Report Type: Spontaneous
  Country: DE (occurrence: DE)
  Receive Date: 20231127
  Receipt Date: 20231127
  Transmission Date: 20240110
  Serious: Yes (Other)
  Sender: FDA-Public Use
  Company Number: DE-BoehringerIngelheim-2023-BI-274628

PATIENT
  Age: 82 Year
  Sex: Male
  Weight: 93 kg

DRUGS (1)
  1. SPIRIVA RESPIMAT [Suspect]
     Active Substance: TIOTROPIUM BROMIDE
     Indication: Chronic obstructive pulmonary disease
     Dosage: 1X2 HUB/DAY
     Route: 055
     Dates: start: 2013

REACTIONS (1)
  - Bladder cancer [Unknown]
